FAERS Safety Report 15530664 (Version 7)
Quarter: 2020Q1

REPORT INFORMATION
  Report Type: Spontaneous
  Country: US (occurrence: US)
  Receive Date: 20181018
  Receipt Date: 20200206
  Transmission Date: 20200409
  Serious: Yes (Death, Hospitalization, Other)
  Sender: FDA-Public Use
  Company Number: US-GILEAD-2018-0368713

PATIENT
  Age: 54 Year
  Sex: Male
  Weight: 101 kg

DRUGS (3)
  1. YESCARTA [Suspect]
     Active Substance: AXICABTAGENE CILOLEUCEL
     Indication: DIFFUSE LARGE B-CELL LYMPHOMA
     Dosage: 68 ML, ONCE
     Route: 042
     Dates: start: 20181002, end: 20181002
  2. FLUDARABINE [Concomitant]
     Active Substance: FLUDARABINE PHOSPHATE
     Indication: BONE MARROW CONDITIONING REGIMEN
     Route: 065
  3. CYCLOPHOSPHAMIDE. [Concomitant]
     Active Substance: CYCLOPHOSPHAMIDE
     Indication: BONE MARROW CONDITIONING REGIMEN

REACTIONS (11)
  - Lymphocyte count decreased [Unknown]
  - Neurotoxicity [Recovered/Resolved]
  - Diffuse large B-cell lymphoma [Fatal]
  - Sepsis [Unknown]
  - Pneumocystis jirovecii pneumonia [Fatal]
  - Cytokine release syndrome [Recovered/Resolved]
  - Neutropenia [Unknown]
  - Chills [Recovered/Resolved]
  - Haemophagocytic lymphohistiocytosis [Fatal]
  - Headache [Recovered/Resolved]
  - Cerebral toxoplasmosis [Fatal]

NARRATIVE: CASE EVENT DATE: 20181006
